FAERS Safety Report 14510423 (Version 11)
Quarter: 2018Q4

REPORT INFORMATION
  Report Type: Report from Study
  Country: US (occurrence: US)
  Receive Date: 20180209
  Receipt Date: 20181231
  Transmission Date: 20190204
  Serious: Yes (Hospitalization, Other)
  Sender: FDA-Public Use
  Company Number: US-CORCEPT THERAPEUTICS INC.-US-2017CRT000166

PATIENT

DRUGS (13)
  1. KORLYM [Suspect]
     Active Substance: MIFEPRISTONE
     Dosage: UNK
     Route: 048
     Dates: start: 20180606
  2. VITAMIN D                          /00107901/ [Concomitant]
     Active Substance: ERGOCALCIFEROL
     Indication: PRODUCT USED FOR UNKNOWN INDICATION
     Dosage: UNK
  3. KORLYM [Suspect]
     Active Substance: MIFEPRISTONE
     Indication: PITUITARY-DEPENDENT CUSHING^S SYNDROME
     Dosage: 300 MG, QD
     Route: 048
     Dates: start: 20170112, end: 20170125
  4. KORLYM [Suspect]
     Active Substance: MIFEPRISTONE
     Dosage: 600 MG, QD
     Route: 048
     Dates: start: 20181217
  5. SPIRONOLACTONE. [Concomitant]
     Active Substance: SPIRONOLACTONE
     Indication: PRODUCT USED FOR UNKNOWN INDICATION
     Dosage: 100 MG, QD
     Dates: end: 20180122
  6. ESTROGEN NOS [Concomitant]
     Active Substance: ESTROGENS
     Indication: PRODUCT USED FOR UNKNOWN INDICATION
     Dosage: UNK
  7. KORLYM [Suspect]
     Active Substance: MIFEPRISTONE
     Dosage: 900 MG, QD
     Route: 048
     Dates: start: 201703, end: 201707
  8. LEXAPRO [Concomitant]
     Active Substance: ESCITALOPRAM OXALATE
     Indication: PRODUCT USED FOR UNKNOWN INDICATION
     Dosage: UNK
  9. KORLYM [Suspect]
     Active Substance: MIFEPRISTONE
     Dosage: 600 MG, QD
     Route: 048
     Dates: start: 20170126, end: 201703
  10. KORLYM [Suspect]
     Active Substance: MIFEPRISTONE
     Dosage: 1200 MG, QD
     Route: 048
     Dates: start: 201707, end: 20180122
  11. LEVOTHYROXINE. [Concomitant]
     Active Substance: LEVOTHYROXINE
     Indication: PRODUCT USED FOR UNKNOWN INDICATION
     Dosage: UNK
  12. KORLYM [Suspect]
     Active Substance: MIFEPRISTONE
     Dosage: 300 MG QD
     Route: 048
     Dates: start: 20181116, end: 20181216
  13. XANAX [Concomitant]
     Active Substance: ALPRAZOLAM
     Indication: PRODUCT USED FOR UNKNOWN INDICATION
     Dosage: UNK

REACTIONS (23)
  - Amenorrhoea [Unknown]
  - Musculoskeletal stiffness [Unknown]
  - Endometrial thickening [Not Recovered/Not Resolved]
  - Malaise [Unknown]
  - Ovarian cyst ruptured [Unknown]
  - Blood thyroid stimulating hormone increased [Unknown]
  - Pain [Recovering/Resolving]
  - Muscle spasms [Unknown]
  - Weight increased [Unknown]
  - Vaginal haemorrhage [Unknown]
  - Arthralgia [Unknown]
  - Myalgia [Unknown]
  - Radical hysterectomy [Unknown]
  - Pelvic pain [Unknown]
  - Abdominal distension [Not Recovered/Not Resolved]
  - Ovarian disorder [Unknown]
  - Vomiting [Unknown]
  - Ovarian enlargement [Not Recovered/Not Resolved]
  - Serum ferritin increased [Unknown]
  - Endometrial disorder [Unknown]
  - Abdominal pain lower [Unknown]
  - Fallopian tube disorder [Recovered/Resolved]
  - Diarrhoea [Unknown]

NARRATIVE: CASE EVENT DATE: 2017
